FAERS Safety Report 12731356 (Version 1)
Quarter: 2016Q3

REPORT INFORMATION
  Report Type: Spontaneous
  Country: US (occurrence: US)
  Receive Date: 20160912
  Receipt Date: 20160912
  Transmission Date: 20161109
  Serious: No
  Sender: FDA-Public Use
  Company Number: US-ASTRAZENECA-2016SE89019

PATIENT
  Sex: Male
  Weight: 106.1 kg

DRUGS (9)
  1. BYDUREON [Suspect]
     Active Substance: EXENATIDE
     Indication: TYPE 2 DIABETES MELLITUS
     Route: 058
  2. LOSARTIN [Concomitant]
     Active Substance: LOSARTAN
     Indication: HYPERTENSION
     Route: 048
  3. BELVIQ [Concomitant]
     Active Substance: LORCASERIN HYDROCHLORIDE
     Indication: OBESITY
  4. ATORVASTIN [Concomitant]
     Active Substance: ATORVASTATIN
     Indication: BLOOD CHOLESTEROL INCREASED
     Route: 048
  5. OMEPRAZOLE. [Suspect]
     Active Substance: OMEPRAZOLE
     Indication: GASTROINTESTINAL DISORDER
     Route: 048
  6. MEDICATIONS [Concomitant]
     Active Substance: UNSPECIFIED INGREDIENT
  7. METROPOLOL [Suspect]
     Active Substance: METOPROLOL
     Indication: HYPERTENSION
     Dosage: 25.0MG UNKNOWN
     Route: 048
  8. INSULIN [Concomitant]
     Active Substance: INSULIN NOS
     Route: 058
  9. ZOSYN [Concomitant]
     Active Substance: PIPERACILLIN SODIUM\TAZOBACTAM SODIUM
     Route: 048

REACTIONS (9)
  - Injection site mass [Recovering/Resolving]
  - Feeling jittery [Recovered/Resolved]
  - Underdose [Recovered/Resolved]
  - Weight decreased [Recovering/Resolving]
  - Intentional device misuse [Recovered/Resolved]
  - Dry eye [Not Recovered/Not Resolved]
  - Injection site extravasation [Unknown]
  - Injection site pain [Recovered/Resolved]
  - Blood glucose fluctuation [Not Recovered/Not Resolved]
